FAERS Safety Report 23443830 (Version 3)
Quarter: 2024Q1

REPORT INFORMATION
  Report Type: Report from Study
  Country: US (occurrence: US)
  Receive Date: 20240125
  Receipt Date: 20240312
  Transmission Date: 20240410
  Serious: Yes (Other)
  Sender: FDA-Public Use
  Company Number: US-PFIZER INC-PV202400010037

PATIENT
  Age: 67 Year
  Sex: Female

DRUGS (7)
  1. BRAFTOVI [Suspect]
     Active Substance: ENCORAFENIB
     Indication: Malignant melanoma
     Dosage: 450 MG (SIX 75 MG CAPSULES), ONCE DAILY
     Route: 048
     Dates: start: 20240110, end: 20240111
  2. BRAFTOVI [Suspect]
     Active Substance: ENCORAFENIB
     Dosage: 75 MG, ONCE DAILY
     Route: 048
     Dates: start: 20240116
  3. BRAFTOVI [Suspect]
     Active Substance: ENCORAFENIB
     Dosage: 150 MG (TWO 75 MG CAPSULES), ONCE DAILY
     Route: 048
     Dates: start: 20240130
  4. BRAFTOVI [Suspect]
     Active Substance: ENCORAFENIB
     Dosage: 150 MG (TWO 75 MG CAPSULES), TWICE DAILY
     Route: 048
  5. MEKTOVI [Suspect]
     Active Substance: BINIMETINIB
     Indication: Malignant melanoma
     Dosage: 45 MG (THREE 15 MG TABLETS), TWICE DAILY
     Route: 048
     Dates: start: 20240110, end: 20240111
  6. MEKTOVI [Suspect]
     Active Substance: BINIMETINIB
     Dosage: 15 MG, ONCE DAILY
     Route: 048
     Dates: start: 20240123
  7. MEKTOVI [Suspect]
     Active Substance: BINIMETINIB
     Dosage: 15 MG, TWICE DAILY
     Route: 048
     Dates: start: 20240130

REACTIONS (10)
  - Central serous chorioretinopathy [Recovered/Resolved]
  - Nausea [Recovered/Resolved]
  - Vomiting [Recovered/Resolved]
  - Diarrhoea [Recovering/Resolving]
  - Fatigue [Recovering/Resolving]
  - Dermatitis [Recovering/Resolving]
  - Erythema [Recovering/Resolving]
  - Nodule [Not Recovered/Not Resolved]
  - Toothache [Not Recovered/Not Resolved]
  - Off label use [Unknown]

NARRATIVE: CASE EVENT DATE: 20240101
